FAERS Safety Report 6814280-6 (Version None)
Quarter: 2010Q3

REPORT INFORMATION
  Report Type: 
  Country: None (occurrence: None)
  Receive Date: 20100702
  Receipt Date: 20100623
  Transmission Date: 20110219
  Serious: Yes (Other)
  Sender: FDA-Public Use
  Company Number: JP-JNJFOC-20100606973

PATIENT
  Sex: Female

DRUGS (13)
  1. CRAVIT [Suspect]
     Indication: NEUTROPENIA
     Route: 048
  2. CRAVIT [Suspect]
     Indication: EOSINOPENIA
     Route: 048
  3. AMARYL [Interacting]
     Indication: DIABETES MELLITUS
     Dosage: 1 MG FOR BS 500
     Route: 048
  4. AMARYL [Interacting]
     Dosage: THERAPY DURATION- THAN BEFORE TO 23-MAY-2010.
     Route: 048
  5. PARIET [Concomitant]
     Indication: REFLUX OESOPHAGITIS
     Dosage: DURATION- THAN BEFORE TO CONTINUE
     Route: 048
  6. NORVASC [Concomitant]
     Indication: HYPERTENSION
     Dosage: DURATION- THAN BEFORE TO CONTINUE
     Route: 048
  7. BLOPRESS [Concomitant]
     Indication: HYPERTENSION
     Dosage: DURATION- THAN BEFORE TO CONTINUE
     Route: 048
  8. FRANDOL [Concomitant]
     Indication: ANGINA PECTORIS
     Dosage: DURATION- THAN BEFORE TO CONTINUE
     Route: 061
  9. LENDORMIN [Concomitant]
     Indication: INSOMNIA
     Dosage: DURATION- THAN BEFORE TO CONTINUE
     Route: 048
  10. MAGLAX [Concomitant]
     Indication: CONSTIPATION
     Dosage: DURATION- THAN BEFORE TO CONTINUE
     Route: 048
  11. FUNGIZONE [Concomitant]
     Indication: OESOPHAGEAL CANDIDIASIS
     Route: 048
  12. QVAR 40 [Concomitant]
     Indication: ASTHMA
     Dosage: DURATION- THAN BEFORE TO CONTINUE
     Route: 055
  13. TERSIGAN [Concomitant]
     Indication: ASTHMA
     Dosage: DURATION- THAN BEFORE TO CONTINUE
     Route: 055

REACTIONS (6)
  - DRUG INTERACTION [None]
  - HAEMOGLOBIN DECREASED [None]
  - HYPOGLYCAEMIC COMA [None]
  - PRURITUS [None]
  - RASH [None]
  - RECTAL PROLAPSE [None]
